FAERS Safety Report 20491985 (Version 2)
Quarter: 2022Q3

REPORT INFORMATION
  Report Type: Spontaneous
  Country: US (occurrence: US)
  Receive Date: 20220218
  Receipt Date: 20220801
  Transmission Date: 20221026
  Serious: No
  Sender: FDA-Public Use
  Company Number: US-GILEAD-2022-0569392

PATIENT
  Sex: Male
  Weight: 83.915 kg

DRUGS (79)
  1. ATRIPLA [Suspect]
     Active Substance: EFAVIRENZ\EMTRICITABINE\TENOFOVIR DISOPROXIL FUMARATE
     Indication: HIV infection
     Dosage: UNK
     Route: 048
     Dates: start: 2008
  2. ATRIPLA [Suspect]
     Active Substance: EFAVIRENZ\EMTRICITABINE\TENOFOVIR DISOPROXIL FUMARATE
     Dosage: UNK
     Route: 048
     Dates: start: 2006, end: 2008
  3. TRUVADA [Suspect]
     Active Substance: EMTRICITABINE\TENOFOVIR DISOPROXIL FUMARATE
     Indication: HIV infection
     Dosage: UNK
     Route: 048
     Dates: start: 2008, end: 201609
  4. BIKTARVY [Concomitant]
     Active Substance: BICTEGRAVIR SODIUM\EMTRICITABINE\TENOFOVIR ALAFENAMIDE FUMARATE
  5. ODEFSEY [Concomitant]
     Active Substance: EMTRICITABINE\RILPIVIRINE HYDROCHLORIDE\TENOFOVIR ALAFENAMIDE FUMARATE
  6. EDURANT [Concomitant]
     Active Substance: RILPIVIRINE HYDROCHLORIDE
  7. SUSTIVA [Concomitant]
     Active Substance: EFAVIRENZ
  8. TRIUMEQ [Concomitant]
     Active Substance: ABACAVIR SULFATE\DOLUTEGRAVIR SODIUM\LAMIVUDINE
  9. ERYTHROMYCIN [Concomitant]
     Active Substance: ERYTHROMYCIN
  10. DOXYCYCLINE [Concomitant]
     Active Substance: DOXYCYCLINE
  11. DESONIDE [Concomitant]
     Active Substance: DESONIDE
  12. KETOCONAZOLE [Concomitant]
     Active Substance: KETOCONAZOLE
  13. CYMBALTA [Concomitant]
     Active Substance: DULOXETINE HYDROCHLORIDE
  14. METOPROLOL [Concomitant]
     Active Substance: METOPROLOL
  15. ABILIFY [Concomitant]
     Active Substance: ARIPIPRAZOLE
  16. CLONAZEPAM [Concomitant]
     Active Substance: CLONAZEPAM
  17. NASONEX [Concomitant]
     Active Substance: MOMETASONE FUROATE
  18. SELENIUM SULFIDE [Concomitant]
     Active Substance: SELENIUM SULFIDE
  19. LOTEMAX [Concomitant]
     Active Substance: LOTEPREDNOL ETABONATE
  20. TRAZODONE [Concomitant]
     Active Substance: TRAZODONE HYDROCHLORIDE
  21. CIALIS [Concomitant]
     Active Substance: TADALAFIL
  22. BUSPIRONE [Concomitant]
     Active Substance: BUSPIRONE HYDROCHLORIDE
  23. CLOTRIMAZOLE [Concomitant]
     Active Substance: CLOTRIMAZOLE
  24. PANTOPRAZOLE [Concomitant]
     Active Substance: PANTOPRAZOLE
  25. VYVANSE [Concomitant]
     Active Substance: LISDEXAMFETAMINE DIMESYLATE
  26. CIPROFLOXACIN HYDROCHLORIDE [Concomitant]
     Active Substance: CIPROFLOXACIN HYDROCHLORIDE
  27. VIAGRA [Concomitant]
     Active Substance: SILDENAFIL CITRATE
  28. LAMOTRIGINE [Concomitant]
     Active Substance: LAMOTRIGINE
  29. AZITHROMYCIN [Concomitant]
     Active Substance: AZITHROMYCIN
  30. PROAIR HFA [Concomitant]
     Active Substance: ALBUTEROL SULFATE
  31. LIDODERM [Concomitant]
     Active Substance: LIDOCAINE
  32. FLUOCINONIDE [Concomitant]
     Active Substance: FLUOCINONIDE
  33. DICLOFENAC [Concomitant]
     Active Substance: DICLOFENAC
  34. ACETAMINOPHEN AND CODEINE [Concomitant]
     Active Substance: ACETAMINOPHEN\CODEINE PHOSPHATE
  35. GUAIFENESIN AND CODEINE PHOSPHATE [Concomitant]
     Active Substance: CODEINE PHOSPHATE\GUAIFENESIN
  36. ADDERALL [Concomitant]
     Active Substance: AMPHETAMINE ASPARTATE\AMPHETAMINE SULFATE\DEXTROAMPHETAMINE SACCHARATE\DEXTROAMPHETAMINE SULFATE
  37. CYCLOBENZAPRINE [Concomitant]
     Active Substance: CYCLOBENZAPRINE
  38. VALACYCLOVIR [Concomitant]
     Active Substance: VALACYCLOVIR HYDROCHLORIDE
  39. METRONIDAZOLE [Concomitant]
     Active Substance: METRONIDAZOLE
  40. GABAPENTIN [Concomitant]
     Active Substance: GABAPENTIN
  41. MELATONIN [Concomitant]
     Active Substance: MELATONIN
  42. PROBIOTICS NOS [Concomitant]
     Active Substance: PROBIOTICS NOS
  43. LOPERAMIDE HYDROCHLORIDE [Concomitant]
     Active Substance: LOPERAMIDE HYDROCHLORIDE
  44. CICLOPIROX [Concomitant]
     Active Substance: CICLOPIROX
  45. OMEPRAZOLE [Concomitant]
     Active Substance: OMEPRAZOLE
  46. IBUPROFEN [Concomitant]
     Active Substance: IBUPROFEN
  47. MUPIROCIN [Concomitant]
     Active Substance: MUPIROCIN
  48. TRAMADOL [Concomitant]
     Active Substance: TRAMADOL
  49. DULOXETINE [Concomitant]
     Active Substance: DULOXETINE
  50. SILVER SULFADIAZINE [Concomitant]
     Active Substance: SILVER SULFADIAZINE
  51. AMMONIUM LACTATE [Concomitant]
     Active Substance: AMMONIUM LACTATE
  52. LINZESS [Concomitant]
     Active Substance: LINACLOTIDE
  53. VENTOLIN [Concomitant]
     Active Substance: ALBUTEROL SULFATE
  54. VIRTUSSIN AC [Concomitant]
     Active Substance: CODEINE PHOSPHATE\GUAIFENESIN
  55. PROVENTIL [Concomitant]
     Active Substance: ALBUTEROL
  56. BUPROPION [Concomitant]
     Active Substance: BUPROPION
  57. FLUTICASONE [Concomitant]
     Active Substance: FLUTICASONE
  58. TOPIRAMATE [Concomitant]
     Active Substance: TOPIRAMATE
  59. TESTOSTERONE [Concomitant]
     Active Substance: TESTOSTERONE
  60. CLARITIN [Concomitant]
     Active Substance: LORATADINE
  61. TRIAMCINOLONE [Concomitant]
     Active Substance: TRIAMCINOLONE
  62. VANCOMYCIN [Concomitant]
     Active Substance: VANCOMYCIN
  63. FENTANYL [Concomitant]
     Active Substance: FENTANYL
  64. ZOFRAN [Concomitant]
     Active Substance: ONDANSETRON HYDROCHLORIDE
  65. PSYLLIUM SEED W/DEXTROSE [Concomitant]
  66. TIZANIDINE [Concomitant]
     Active Substance: TIZANIDINE
  67. LIDOCAINE [Concomitant]
     Active Substance: LIDOCAINE
  68. PROPOFOL [Concomitant]
     Active Substance: PROPOFOL
  69. DEXAMETHASONE [Concomitant]
     Active Substance: DEXAMETHASONE
  70. CEFAZOLIN [Concomitant]
     Active Substance: CEFAZOLIN
  71. BUPIVACAINE HCL AND EPINEPHRINE [Concomitant]
  72. CLINDAMYCIN [Concomitant]
     Active Substance: CLINDAMYCIN
  73. DIGESTIVE ENZYMES [ALPHA-D-GALACTOSIDASE;AMYLASE;BROMELAINS;CELLULASE; [Concomitant]
  74. MIDAZOLAM [Concomitant]
     Active Substance: MIDAZOLAM
  75. OXYCODONE [Concomitant]
     Active Substance: OXYCODONE
  76. SODIUM CHLORIDE [Concomitant]
     Active Substance: SODIUM CHLORIDE
  77. BYSTOLIC [Concomitant]
     Active Substance: NEBIVOLOL HYDROCHLORIDE
  78. ZINC [Concomitant]
     Active Substance: ZINC
  79. CANNABIS SATIVA SUBSP. INDICA TOP [Concomitant]
     Active Substance: CANNABIS SATIVA SUBSP. INDICA TOP

REACTIONS (14)
  - Osteopenia [Not Recovered/Not Resolved]
  - Bone demineralisation [Unknown]
  - Wrist fracture [Not Recovered/Not Resolved]
  - Pain [Not Recovered/Not Resolved]
  - Emotional distress [Not Recovered/Not Resolved]
  - Anxiety [Not Recovered/Not Resolved]
  - Anhedonia [Not Recovered/Not Resolved]
  - Tooth loss [Not Recovered/Not Resolved]
  - Muscle spasms [Not Recovered/Not Resolved]
  - Dysstasia [Not Recovered/Not Resolved]
  - Musculoskeletal stiffness [Not Recovered/Not Resolved]
  - Posture abnormal [Not Recovered/Not Resolved]
  - Back pain [Not Recovered/Not Resolved]
  - Skeletal injury [Not Recovered/Not Resolved]

NARRATIVE: CASE EVENT DATE: 20090101
